FAERS Safety Report 5053277-6 (Version None)
Quarter: 2006Q3

REPORT INFORMATION
  Report Type: 
  Country: None (occurrence: None)
  Receive Date: 20060712
  Receipt Date: 20060627
  Transmission Date: 20061208
  Serious: Yes (Death)
  Sender: FDA-Public Use
  Company Number: 2006BL003726

PATIENT
  Sex: Male

DRUGS (22)
  1. DEXAMETHASONE [Suspect]
     Indication: CHRONIC OBSTRUCTIVE PULMONARY DISEASE
  2. ASPIRIN [Suspect]
  3. ATORVASTATIN (ATORASVASTATIN) [Concomitant]
  4. BECLOMETHASONE DIPROPIONATE (BECLOMEHTASONE DIPROPIONATE) [Suspect]
     Dosage: DAILY; OROPHARYNGEAL
     Route: 049
  5. DILTIAZEM [Suspect]
     Dosage: DAILY
  6. DOSULEPIN (DOSULEPIN) [Suspect]
     Dosage: DAILY
  7. FRUMIL (FRUMIL) [Suspect]
  8. FUROSEMIDE [Suspect]
     Dosage: DAILY
  9. GAVISCON [Suspect]
     Dosage: DAILY
  10. LACTULOSE [Suspect]
  11. LANSOPRAZOLE [Suspect]
     Dosage: DAILY
  12. METOCLOPRAMIDE [Suspect]
     Dosage: DAILY
  13. NITROLINGUAL (GLYCERYL TRINITRATE) [Suspect]
  14. NOZINAN (LEVOMEPROMAZINE MALEATE) [Suspect]
     Dosage: DAILY
  15. OXYCODONE (OXYCODONE) [Suspect]
     Dosage: DAILY
  16. OXYGEN (OXYGEN) [Suspect]
     Dosage: OROPHARYNGEAL
     Route: 049
  17. COMBIVENT [Suspect]
     Indication: CHRONIC OBSTRUCTIVE PULMONARY DISEASE
     Dosage: OROPHARYNGEAL
     Route: 049
     Dates: start: 20030617, end: 20040513
  18. SALBUTAMOL (SALBUMATOL) [Suspect]
     Dosage: DAILY; OROPHARYNGEAL
     Route: 049
  19. SPIRIVA [Suspect]
     Indication: CHRONIC OBSTRUCTIVE PULMONARY DISEASE
     Dosage: 18 MICROGRAMS; DAILY; OROPHARYNEAL
     Route: 049
     Dates: start: 20030617, end: 20040701
  20. SPIRONOLACTONE [Suspect]
  21. SYMBICORT TURBUHALER ^ASTRAZENECA^ (SYMBICORT TURBUHALER ^DRACO^) [Suspect]
     Dosage: OROPHARYNGEAL
     Route: 049
  22. TEMAZEPAM [Suspect]
     Dosage: DAILY

REACTIONS (1)
  - MESOTHELIOMA [None]
